FAERS Safety Report 7603563-8 (Version None)
Quarter: 2011Q3

REPORT INFORMATION
  Report Type: 
  Country: None (occurrence: None)
  Receive Date: 20110711
  Receipt Date: 20110711
  Transmission Date: 20111222
  Serious: No
  Sender: FDA-Public Use
  Company Number: None

PATIENT
  Age: 80 Year
  Sex: Male
  Weight: 70.3075 kg

DRUGS (1)
  1. VALACYCLOVIR [Suspect]
     Indication: HERPES ZOSTER
     Dosage: 1 TAB, 500 MG. 7 DAYS PO
     Route: 048
     Dates: start: 20110630, end: 20110707

REACTIONS (2)
  - RASH [None]
  - PENILE SWELLING [None]
